FAERS Safety Report 8465114-8 (Version None)
Quarter: 2012Q2

REPORT INFORMATION
  Report Type: 
  Country: None (occurrence: None)
  Receive Date: 20120619
  Receipt Date: 20120530
  Transmission Date: 20120825
  Serious: Yes (Death)
  Sender: FDA-Public Use
  Company Number: EU-2012-10158

PATIENT
  Sex: Female

DRUGS (1)
  1. SAMSCA [Suspect]
     Indication: INAPPROPRIATE ANTIDIURETIC HORMONE SECRETION
     Dosage: 15 MG MILIGRAM(S), DAILY DOSE

REACTIONS (1)
  - CARDIAC DISORDER [None]
